FAERS Safety Report 9651458 (Version 2)
Quarter: 2013Q4

REPORT INFORMATION
  Report Type: Spontaneous
  Country: US (occurrence: US)
  Receive Date: 20131029
  Receipt Date: 20131029
  Transmission Date: 20140711
  Serious: Yes (Disabling, Other)
  Sender: FDA-Public Use
  Company Number: US-JNJFOC-20130718963

PATIENT
  Sex: Male
  Weight: 81.65 kg

DRUGS (24)
  1. XARELTO [Suspect]
     Indication: THROMBOSIS PROPHYLAXIS
     Dosage: FOR ABOUT 1 YEAR
     Route: 048
  2. XARELTO [Suspect]
     Indication: THROMBOSIS PROPHYLAXIS
     Dosage: 2 TO 3 DAYS
     Route: 048
  3. XARELTO [Suspect]
     Indication: THROMBOSIS PROPHYLAXIS
     Route: 048
  4. XARELTO [Suspect]
     Indication: THROMBOSIS PROPHYLAXIS
     Route: 048
  5. XARELTO [Suspect]
     Indication: CEREBROVASCULAR ACCIDENT PROPHYLAXIS
     Route: 048
  6. XARELTO [Suspect]
     Indication: CEREBROVASCULAR ACCIDENT PROPHYLAXIS
     Route: 048
  7. XARELTO [Suspect]
     Indication: CEREBROVASCULAR ACCIDENT PROPHYLAXIS
     Dosage: 2 TO 3 DAYS
     Route: 048
  8. XARELTO [Suspect]
     Indication: CEREBROVASCULAR ACCIDENT PROPHYLAXIS
     Dosage: FOR ABOUT 1 YEAR
     Route: 048
  9. XARELTO [Suspect]
     Indication: KNEE ARTHROPLASTY
     Dosage: FOR ABOUT 1 YEAR
     Route: 048
  10. XARELTO [Suspect]
     Indication: KNEE ARTHROPLASTY
     Dosage: 2 TO 3 DAYS
     Route: 048
  11. XARELTO [Suspect]
     Indication: KNEE ARTHROPLASTY
     Route: 048
  12. XARELTO [Suspect]
     Indication: KNEE ARTHROPLASTY
     Route: 048
  13. XARELTO [Suspect]
     Indication: ATRIAL FIBRILLATION
     Dosage: 2 TO 3 DAYS
     Route: 048
  14. XARELTO [Suspect]
     Indication: ATRIAL FIBRILLATION
     Route: 048
  15. XARELTO [Suspect]
     Indication: ATRIAL FIBRILLATION
     Route: 048
  16. XARELTO [Suspect]
     Indication: ATRIAL FIBRILLATION
     Dosage: FOR ABOUT 1 YEAR
     Route: 048
  17. FERROUS SULFATE [Concomitant]
     Dosage: 325 MG TOTAL WITH BREAKFAST
     Route: 048
  18. LISINOPRIL [Concomitant]
     Route: 048
  19. AFLURIA [Concomitant]
     Route: 030
  20. DOCUSATE SODIUM [Concomitant]
     Dosage: 2 CAPSULES NIGHTLY WHILE TAKING PERCOCET, HOLD FOR LOOSE STOOLS.
     Route: 048
  21. LANOXIN [Concomitant]
     Route: 048
  22. COREG [Concomitant]
     Route: 048
  23. COLACE [Concomitant]
     Dosage: 2 CAPSULES NIGHTLY WHILE TAKING PERCOCET, HOLD FOR LOOSE STOOLS.
     Route: 048
  24. PERCOCET [Concomitant]
     Indication: PAIN
     Dosage: 1-2 TABLETS EVERY 4 TO 6 HOURS AS NEEDED.
     Route: 048

REACTIONS (3)
  - Haematoma [Not Recovered/Not Resolved]
  - Bone infarction [Unknown]
  - Fat necrosis [Unknown]
